FAERS Safety Report 5007525-9 (Version None)
Quarter: 2006Q2

REPORT INFORMATION
  Report Type: 
  Country: None (occurrence: None)
  Receive Date: 20060517
  Receipt Date: 20060505
  Transmission Date: 20061013
  Serious: Yes (Hospitalization)
  Sender: FDA-Public Use
  Company Number: 224782

PATIENT
  Age: 45 Year
  Sex: Male
  Weight: 97.5 kg

DRUGS (8)
  1. RITUXAN [Suspect]
     Indication: NON-HODGKIN'S LYMPHOMA
     Dates: start: 20060329, end: 20060329
  2. CYCLOPHOSPHAMIDE [Concomitant]
  3. DOXORUBICIN HCL [Concomitant]
  4. VINCRISTINE [Concomitant]
  5. PREDNISONE TAB [Concomitant]
  6. SEROQUEL [Concomitant]
  7. LISIPRIL (LISINOPRIL) [Concomitant]
  8. IBUPROFEN [Concomitant]

REACTIONS (7)
  - ABDOMINAL PAIN [None]
  - DRUG SCREEN POSITIVE [None]
  - NIGHT SWEATS [None]
  - PLEURAL EFFUSION [None]
  - SYNCOPE [None]
  - VOMITING [None]
  - WEIGHT DECREASED [None]
